FAERS Safety Report 10244549 (Version 1)
Quarter: 2014Q2

REPORT INFORMATION
  Report Type: Spontaneous
  Country: IL (occurrence: None)
  Receive Date: 20140616
  Receipt Date: 20140616
  Transmission Date: 20141212
  Serious: Yes (Hospitalization)
  Sender: FDA-Public Use
  Company Number: 2014SUP00005

PATIENT
  Age: 54 Year
  Sex: Male

DRUGS (2)
  1. TOPIRAMATE (TOPIRAMATE) [Suspect]
     Indication: BINGE EATING
     Dosage: 1X/DAY
     Route: 048
  2. TOPIRAMATE (TOPIRAMATE) [Suspect]
     Indication: OBESITY
     Dosage: 1X/DAY
     Route: 048

REACTIONS (2)
  - Uveitis [None]
  - Angle closure glaucoma [None]
